FAERS Safety Report 12168554 (Version 2)
Quarter: 2016Q2

REPORT INFORMATION
  Report Type: Spontaneous
  Country: US (occurrence: US)
  Receive Date: 20160310
  Receipt Date: 20160613
  Transmission Date: 20160815
  Serious: No
  Sender: FDA-Public Use
  Company Number: US-BIOCOMPATIBLES UK LTD-BTG00648

PATIENT
  Age: 81 Year
  Sex: Male
  Weight: 117.91 kg

DRUGS (1)
  1. VARITHENA [Suspect]
     Active Substance: POLIDOCANOL
     Indication: VARICOPHLEBITIS
     Dosage: 11.5 CC OF FOAM ADMINISTERED TO MULTIPLE SITES
     Route: 042
     Dates: start: 20160118, end: 20160118

REACTIONS (2)
  - No adverse event [Unknown]
  - Poor quality drug administered [Unknown]

NARRATIVE: CASE EVENT DATE: 20160118
